FAERS Safety Report 20556669 (Version 1)
Quarter: 2022Q1

REPORT INFORMATION
  Report Type: Spontaneous
  Country: DE (occurrence: DE)
  Receive Date: 20220307
  Receipt Date: 20220307
  Transmission Date: 20220423
  Serious: Yes (Hospitalization)
  Sender: FDA-Public Use
  Company Number: DE-SUN PHARMACEUTICAL INDUSTRIES LTD-2022RR-328758

PATIENT
  Age: 39 Year
  Sex: Female

DRUGS (1)
  1. ISOTRETINOIN [Suspect]
     Active Substance: ISOTRETINOIN
     Indication: Acne
     Dosage: FOR 2.5 YEARS; NOW ONLY TAKEN VERY IRREGULARLY
     Route: 065
     Dates: start: 2019

REACTIONS (6)
  - Dyspnoea [Unknown]
  - Oropharyngeal pain [Unknown]
  - COVID-19 [Unknown]
  - Mucosal disorder [Unknown]
  - Epistaxis [Unknown]
  - Drug-disease interaction [Unknown]

NARRATIVE: CASE EVENT DATE: 20220101
